FAERS Safety Report 24107356 (Version 2)
Quarter: 2025Q1

REPORT INFORMATION
  Report Type: Spontaneous
  Country: US (occurrence: US)
  Receive Date: 20240718
  Receipt Date: 20250327
  Transmission Date: 20250409
  Serious: Yes (Death)
  Sender: Haleon PLC
  Company Number: US-HALEON-2187222

PATIENT
  Age: 59 Year
  Sex: Female

DRUGS (1)
  1. CALCIUM [Suspect]
     Active Substance: CALCIUM
     Indication: Hypocalcaemia

REACTIONS (2)
  - Drug ineffective [Fatal]
  - Condition aggravated [Fatal]
